FAERS Safety Report 8546226-7 (Version None)
Quarter: 2012Q3

REPORT INFORMATION
  Report Type: 
  Country: None (occurrence: None)
  Receive Date: 20120727
  Receipt Date: 20120712
  Transmission Date: 20120928
  Serious: Yes (Other)
  Sender: FDA-Public Use
  Company Number: CA-WATSON-2012-12580

PATIENT
  Age: 10 Year
  Sex: Male

DRUGS (3)
  1. PREDNISONE TAB [Suspect]
     Dosage: 10 MG, DAILY
     Route: 065
  2. AZATHIOPRINE [Suspect]
     Indication: DEMYELINATING POLYNEUROPATHY
     Dosage: UNK
     Route: 065
  3. PREDNISONE TAB [Suspect]
     Indication: DEMYELINATING POLYNEUROPATHY
     Dosage: 70 MG, DAILY
     Route: 065

REACTIONS (3)
  - OBESITY [None]
  - HYPERTENSION [None]
  - HEPATIC ENZYME INCREASED [None]
